FAERS Safety Report 10591770 (Version 3)
Quarter: 2015Q4

REPORT INFORMATION
  Report Type: Spontaneous
  Country: US (occurrence: US)
  Receive Date: 20141118
  Receipt Date: 20151125
  Transmission Date: 20160304
  Serious: Yes (Life-Threatening, Hospitalization)
  Sender: FDA-Public Use
  Company Number: US-ASTRAZENECA-2012SE08824

PATIENT
  Age: 67 Year
  Sex: Female
  Weight: 50.3 kg

DRUGS (24)
  1. SYMBICORT [Suspect]
     Active Substance: BUDESONIDE\FORMOTEROL FUMARATE DIHYDRATE
     Indication: DYSPNOEA
     Dosage: 160 MCG/4.5 MCG, TWO PUFFS, TWO TIMES A DAY
     Route: 055
     Dates: start: 2009
  2. GLIPIZIDE. [Concomitant]
     Active Substance: GLIPIZIDE
     Indication: DIABETES MELLITUS
     Route: 048
     Dates: start: 2007
  3. VITAMINS [Concomitant]
     Active Substance: VITAMINS
     Indication: VITAMIN SUPPLEMENTATION
  4. FISH OIL [Concomitant]
     Active Substance: FISH OIL
     Indication: CARDIAC DISORDER
     Route: 048
     Dates: start: 2000
  5. FLEXERIL [Concomitant]
     Active Substance: CYCLOBENZAPRINE HYDROCHLORIDE
     Indication: MUSCLE SPASMS
     Route: 048
     Dates: start: 2000
  6. FLAXSEED [Concomitant]
     Active Substance: FLAX SEED
     Indication: EYE DISORDER
     Route: 048
     Dates: start: 2000
  7. VITAMIN D [Concomitant]
     Active Substance: CHOLECALCIFEROL
     Indication: CARDIAC DISORDER
     Route: 048
     Dates: start: 2000
  8. PRESERVISION [Concomitant]
     Active Substance: MINERALS\VITAMINS
     Indication: EYE DISORDER
     Dosage: TWO TIMES A DAY
     Route: 047
     Dates: start: 2011
  9. OXYGEN. [Concomitant]
     Active Substance: OXYGEN
     Indication: LUNG LOBECTOMY
     Dosage: 1-2 L AS REQUIRED
  10. NEXIUM [Suspect]
     Active Substance: ESOMEPRAZOLE MAGNESIUM
     Indication: GASTROOESOPHAGEAL REFLUX DISEASE
     Route: 048
     Dates: start: 2004
  11. DILTIAZEM [Concomitant]
     Active Substance: DILTIAZEM
     Indication: ATRIAL FIBRILLATION
     Route: 048
  12. FISH OIL [Concomitant]
     Active Substance: FISH OIL
     Indication: EYE DISORDER
     Route: 048
     Dates: start: 2000
  13. CARDIZEM [Concomitant]
     Active Substance: DILTIAZEM HYDROCHLORIDE
     Indication: ATRIAL FIBRILLATION
     Route: 048
  14. CALCIUM [Concomitant]
     Active Substance: CALCIUM
     Indication: CARDIAC DISORDER
     Route: 048
     Dates: start: 2000
  15. VITAMIN D [Concomitant]
     Active Substance: CHOLECALCIFEROL
     Indication: EYE DISORDER
     Route: 048
     Dates: start: 2000
  16. MUCINEX DM [Concomitant]
     Active Substance: DEXTROMETHORPHAN HYDROBROMIDE\GUAIFENESIN
     Indication: PRODUCTIVE COUGH
     Route: 048
     Dates: start: 2009
  17. FLAXSEED [Concomitant]
     Active Substance: FLAX SEED
     Indication: CARDIAC DISORDER
     Route: 048
     Dates: start: 2000
  18. IMITREX [Concomitant]
     Active Substance: SUMATRIPTAN\SUMATRIPTAN SUCCINATE
     Indication: MIGRAINE
     Route: 048
     Dates: start: 1995
  19. TESSALIN PURLE [Concomitant]
     Indication: COUGH
     Route: 048
     Dates: start: 2009
  20. DIGOXIN. [Concomitant]
     Active Substance: DIGOXIN
     Indication: CARDIAC DISORDER
     Route: 048
  21. NEXIUM [Suspect]
     Active Substance: ESOMEPRAZOLE MAGNESIUM
     Indication: DYSPEPSIA
     Route: 048
     Dates: start: 2004
  22. CALCIUM [Concomitant]
     Active Substance: CALCIUM
     Indication: EYE DISORDER
     Route: 048
     Dates: start: 2000
  23. VITAMIN B NOS [Concomitant]
     Active Substance: VITAMIN B
     Indication: NERVOUS SYSTEM DISORDER
     Dosage: DAILY
     Route: 048
     Dates: start: 1995
  24. PROVENTIL HFA [Concomitant]
     Active Substance: ALBUTEROL SULFATE
     Dosage: AS NEEDED
     Dates: start: 2009

REACTIONS (9)
  - Drug dose omission [Unknown]
  - Pneumonia [Recovered/Resolved]
  - Emphysema [Unknown]
  - Atrial fibrillation [Unknown]
  - Post procedural complication [Unknown]
  - Apparent death [Unknown]
  - Off label use [Not Recovered/Not Resolved]
  - Bronchitis [Recovered/Resolved]
  - Diabetes mellitus [Unknown]

NARRATIVE: CASE EVENT DATE: 2007
